FAERS Safety Report 9737154 (Version 1)
Quarter: 2013Q4

REPORT INFORMATION
  Report Type: Spontaneous
  Country: DE (occurrence: DE)
  Receive Date: 20131206
  Receipt Date: 20131206
  Transmission Date: 20140711
  Serious: Yes (Life-Threatening)
  Sender: FDA-Public Use
  Company Number: DE-ROCHE-1311796

PATIENT
  Sex: Male

DRUGS (1)
  1. ACTILYSE [Suspect]
     Indication: CEREBRAL ARTERY OCCLUSION
     Route: 065

REACTIONS (2)
  - Cerebral infarction [Not Recovered/Not Resolved]
  - Activated partial thromboplastin time prolonged [Unknown]
